FAERS Safety Report 15470290 (Version 6)
Quarter: 2019Q2

REPORT INFORMATION
  Report Type: Spontaneous
  Country: GR (occurrence: GR)
  Receive Date: 20181005
  Receipt Date: 20190401
  Transmission Date: 20190711
  Serious: Yes (Death, Other)
  Sender: FDA-Public Use
  Company Number: GR-PFIZER INC-2018392945

PATIENT
  Age: 50 Year
  Sex: Male

DRUGS (15)
  1. CLOPIDOGREL [Suspect]
     Active Substance: CLOPIDOGREL BISULFATE
     Indication: MYOCARDIAL INFARCTION
     Dosage: UNK
  2. VALSARTAN. [Suspect]
     Active Substance: VALSARTAN
     Indication: VASCULAR STENT THROMBOSIS
  3. ATORVASTATIN CALCIUM. [Suspect]
     Active Substance: ATORVASTATIN CALCIUM
     Indication: VASCULAR STENT THROMBOSIS
  4. ASPIRIN [ACETYLSALICYLIC ACID] [Suspect]
     Active Substance: ASPIRIN
     Indication: VASCULAR STENT THROMBOSIS
  5. CLOPIDOGREL [Suspect]
     Active Substance: CLOPIDOGREL BISULFATE
     Indication: VASCULAR STENT THROMBOSIS
  6. ISOSORBIDE MONONITRATE. [Suspect]
     Active Substance: ISOSORBIDE MONONITRATE
     Indication: VASCULAR STENT THROMBOSIS
  7. VALSARTAN. [Suspect]
     Active Substance: VALSARTAN
     Indication: MYOCARDIAL INFARCTION
     Dosage: UNK
  8. BIVALIRUDIN. [Suspect]
     Active Substance: BIVALIRUDIN
     Indication: ANTICOAGULANT THERAPY
     Dosage: 0.75 MG/KG, UNK
     Route: 040
  9. ATORVASTATIN CALCIUM. [Suspect]
     Active Substance: ATORVASTATIN CALCIUM
     Indication: MYOCARDIAL INFARCTION
     Dosage: UNK
  10. METOPROLOL. [Suspect]
     Active Substance: METOPROLOL
     Indication: MYOCARDIAL INFARCTION
     Dosage: UNK
  11. METOPROLOL. [Suspect]
     Active Substance: METOPROLOL
     Indication: VASCULAR STENT THROMBOSIS
  12. ASPIRIN [ACETYLSALICYLIC ACID] [Suspect]
     Active Substance: ASPIRIN
     Indication: MYOCARDIAL INFARCTION
     Dosage: UNK
  13. BIVALIRUDIN. [Suspect]
     Active Substance: BIVALIRUDIN
     Dosage: UNK (MAINTENANCE INFUSION OF 1.75 MG/KG/HR)
  14. ISOSORBIDE MONONITRATE. [Suspect]
     Active Substance: ISOSORBIDE MONONITRATE
     Indication: MYOCARDIAL INFARCTION
     Dosage: UNK
  15. HEPARIN [Suspect]
     Active Substance: HEPARIN SODIUM
     Indication: ANTICOAGULANT THERAPY
     Dosage: 50 IU, UNK, (INTRA-ARTERIAL)
     Route: 013

REACTIONS (1)
  - Kounis syndrome [Fatal]
